FAERS Safety Report 9463208 (Version 3)
Quarter: 2013Q3

REPORT INFORMATION
  Report Type: Spontaneous
  Country: GB (occurrence: GB)
  Receive Date: 20130818
  Receipt Date: 20130830
  Transmission Date: 20140515
  Serious: Yes (Other)
  Sender: FDA-Public Use
  Company Number: PHFR2013GB004045

PATIENT
  Sex: Female
  Weight: 80 kg

DRUGS (5)
  1. TEGRETOL [Suspect]
     Indication: PAIN
     Dosage: 200 MG, BID
     Route: 048
  2. TRAMADOL [Suspect]
     Indication: PAIN
     Dosage: 100 MG, DAILY
     Route: 048
  3. VENLAFAXINE [Suspect]
     Dosage: 225 MG, DAILY
     Route: 048
  4. VENLAFAXINE [Suspect]
     Indication: MOOD ALTERED
  5. PREGABALIN [Suspect]
     Dosage: UNK UKN, UNK

REACTIONS (3)
  - Premature labour [Unknown]
  - Maternal exposure during pregnancy [Unknown]
  - Exposure during breast feeding [Unknown]
